FAERS Safety Report 7833214-9 (Version None)
Quarter: 2011Q4

REPORT INFORMATION
  Report Type: 
  Country: None (occurrence: None)
  Receive Date: 20111024
  Receipt Date: 20111019
  Transmission Date: 20120403
  Serious: Yes (Other)
  Sender: FDA-Public Use
  Company Number: GB-PFIZER INC-2011211862

PATIENT
  Age: 43 Year
  Sex: Male
  Weight: 65 kg

DRUGS (4)
  1. ACETAMINOPHEN [Suspect]
     Indication: JOINT INJURY
     Dosage: 200 MG AND 500 MG UNIT DOSE
     Route: 048
     Dates: start: 20110901, end: 20110908
  2. TRAMADOL [Concomitant]
     Indication: ARTHRALGIA
     Dosage: 50 MG, 1X/DAY
     Route: 048
     Dates: end: 20110908
  3. TRAMADOL [Concomitant]
     Dosage: 1 DF, 4X DAILY AS NEEDED
     Route: 048
     Dates: start: 20110901, end: 20110908
  4. VARENICLINE TARTRATE [Suspect]
     Dosage: 1 MG, 2X/DAY
     Route: 048
     Dates: start: 20110622, end: 20110907

REACTIONS (1)
  - HAEMATURIA [None]
